FAERS Safety Report 4353722-5 (Version None)
Quarter: 2004Q2

REPORT INFORMATION
  Report Type: 
  Country: None (occurrence: None)
  Receive Date: 20040430
  Receipt Date: 20040329
  Transmission Date: 20050107
  Serious: No
  Sender: FDA-Public Use
  Company Number: 203940

PATIENT
  Age: 28 Year
  Sex: Female
  Weight: 84 kg

DRUGS (1)
  1. XOLAIR [Suspect]
     Indication: LATEX ALLERGY
     Dosage: 150 MG, Q4W, SUBCUTANEOUS
     Route: 058
     Dates: start: 20031109

REACTIONS (1)
  - MENORRHAGIA [None]
